FAERS Safety Report 11729289 (Version 2)
Quarter: 2015Q4

REPORT INFORMATION
  Report Type: Spontaneous
  Country: ES (occurrence: ES)
  Receive Date: 20151112
  Receipt Date: 20151124
  Transmission Date: 20160304
  Serious: Yes (Hospitalization, Other)
  Sender: FDA-Public Use
  Company Number: ES-APOTEX-2015AP014378

PATIENT
  Age: 48 Year
  Sex: Female

DRUGS (2)
  1. OLANZAPINE. [Suspect]
     Active Substance: OLANZAPINE
     Indication: PRODUCT USED FOR UNKNOWN INDICATION
     Dosage: 300 MG, SINGLE
     Route: 048
  2. VALPROIC ACID. [Suspect]
     Active Substance: VALPROIC ACID
     Indication: PRODUCT USED FOR UNKNOWN INDICATION
     Route: 048

REACTIONS (12)
  - Blood lactic acid increased [Recovering/Resolving]
  - Intentional overdose [Recovering/Resolving]
  - Hypernatraemia [Recovering/Resolving]
  - Acute kidney injury [Recovering/Resolving]
  - Tachycardia [Recovering/Resolving]
  - Hypokalaemia [Recovering/Resolving]
  - Suicide attempt [Recovering/Resolving]
  - Thrombocytopenia [Recovering/Resolving]
  - Hyperammonaemia [Recovering/Resolving]
  - Hypocalcaemia [Recovering/Resolving]
  - Hypothermia [Recovering/Resolving]
  - Toxicity to various agents [Recovering/Resolving]
